FAERS Safety Report 24262161 (Version 1)
Quarter: 2024Q3

REPORT INFORMATION
  Report Type: Spontaneous
  Country: PL (occurrence: PL)
  Receive Date: 20240829
  Receipt Date: 20240829
  Transmission Date: 20241017
  Serious: Yes (Hospitalization, Other)
  Sender: STRIDES
  Company Number: PL-STRIDES ARCOLAB LIMITED-2024SP010664

PATIENT
  Age: 14 Year
  Sex: Female

DRUGS (10)
  1. ETOPOSIDE [Suspect]
     Active Substance: ETOPOSIDE
     Indication: Acute myeloid leukaemia
     Dosage: UNK, CYCLICAL (AS A PART OF AIE IN AML-BFM-2019 CHEMOTHERAPY REGIMEN)
     Route: 065
  2. CYTARABINE [Suspect]
     Active Substance: CYTARABINE
     Indication: Acute myeloid leukaemia
     Dosage: UNK, CYCLICAL (AS A PART OF AIE IN AML-BFM-2019 CHEMOTHERAPY REGIMEN)
     Route: 065
  3. CYTARABINE [Suspect]
     Active Substance: CYTARABINE
     Dosage: UNK, CYCLICAL (AS A PART OF HAM IN AML-BFM-2019 CHEMOTHERAPY REGIMEN)
     Route: 065
  4. IDARUBICIN [Suspect]
     Active Substance: IDARUBICIN
     Indication: Acute myeloid leukaemia
     Dosage: UNK, CYCLICAL (AS A PART OF AIE IN AML-BFM-2019 CHEMOTHERAPY REGIMEN)
     Route: 065
  5. MITOXANTRONE [Suspect]
     Active Substance: MITOXANTRONE HYDROCHLORIDE
     Indication: Acute myeloid leukaemia
     Dosage: UNK, CYCLICAL (AS A PART OF HAM IN AML-BFM-2019 CHEMOTHERAPY REGIMEN)
     Route: 065
  6. FLUDARABINE [Suspect]
     Active Substance: FLUDARABINE PHOSPHATE
     Indication: Acute myeloid leukaemia
     Dosage: UNK, (AS A PART OF AML-BFM-2019 CHEMOTHERAPY REGIMEN)
     Route: 065
  7. TRETINOIN [Suspect]
     Active Substance: TRETINOIN
     Indication: Acute myeloid leukaemia
     Dosage: UNK, (AS A PART OF AML-BFM-2019 CHEMOTHERAPY REGIMEN)
     Route: 065
  8. GEMTUZUMAB OZOGAMICIN [Suspect]
     Active Substance: GEMTUZUMAB OZOGAMICIN
     Indication: Acute myeloid leukaemia
     Dosage: UNK, (AS A PART OF AML-BFM-2019 CHEMOTHERAPY REGIMEN)
     Route: 065
  9. CLOFARABINE [Suspect]
     Active Substance: CLOFARABINE
     Indication: Acute myeloid leukaemia
     Dosage: UNK, (AS A PART OF AML-BFM-2019 CHEMOTHERAPY REGIMEN)
     Route: 065
  10. THIOGUANINE [Suspect]
     Active Substance: THIOGUANINE
     Indication: Acute myeloid leukaemia
     Dosage: UNK, (AS A PART OF AML-BFM-2019 CHEMOTHERAPY REGIMEN)
     Route: 065

REACTIONS (6)
  - Posterior reversible encephalopathy syndrome [Unknown]
  - Septic shock [Unknown]
  - Fungal sepsis [Recovered/Resolved]
  - Device related sepsis [Unknown]
  - Escherichia sepsis [Unknown]
  - Off label use [Unknown]
